FAERS Safety Report 23432495 (Version 2)
Quarter: 2024Q1

REPORT INFORMATION
  Report Type: Spontaneous
  Country: GB (occurrence: GB)
  Receive Date: 20240123
  Receipt Date: 20240125
  Transmission Date: 20240410
  Serious: Yes (Other)
  Sender: FDA-Public Use
  Company Number: GB-MLMSERVICE-20240110-4767294-1

PATIENT
  Age: 3 Decade
  Sex: Female

DRUGS (14)
  1. ONDANSETRON [Suspect]
     Active Substance: ONDANSETRON
     Indication: Antiemetic supportive care
     Dosage: 4 MG, INTRAOPERATIVELY
     Route: 042
  2. CEFUROXIME [Concomitant]
     Active Substance: CEFUROXIME
     Indication: Antibiotic prophylaxis
     Dosage: 1.5 G,  INTRAOPERATIVELY
     Route: 042
  3. METRONIDAZOLE [Concomitant]
     Active Substance: METRONIDAZOLE
     Indication: Antibiotic prophylaxis
     Dosage: 500 MG,  INTRAOPERATIVELY
     Route: 042
  4. SYNTOCINON [Concomitant]
     Active Substance: OXYTOCIN
     Indication: Postpartum haemorrhage
     Dosage: 10 IU STAT DOSE
     Route: 030
  5. SYNTOCINON [Concomitant]
     Active Substance: OXYTOCIN
     Indication: Uterine atony
     Dosage: 40 IU AT A RATE OF 10 IU/HOUR
     Route: 042
  6. ERGONOVINE\OXYTOCIN [Concomitant]
     Active Substance: ERGONOVINE\OXYTOCIN
     Indication: Postpartum haemorrhage
     Dosage: 5 IU/500 MCG STAT DOSE
     Route: 030
  7. ERGONOVINE\OXYTOCIN [Concomitant]
     Active Substance: ERGONOVINE\OXYTOCIN
     Indication: Uterine atony
  8. MISOPROSTOL [Concomitant]
     Active Substance: MISOPROSTOL
     Indication: Postpartum haemorrhage
     Dosage: 1000 MCG PER RECTUM
     Route: 054
  9. MISOPROSTOL [Concomitant]
     Active Substance: MISOPROSTOL
     Indication: Uterine atony
  10. CARBOPROST [Concomitant]
     Active Substance: CARBOPROST
     Indication: Postpartum haemorrhage
     Dosage: 250 MCG STAT
     Route: 030
  11. CARBOPROST [Concomitant]
     Active Substance: CARBOPROST
     Indication: Uterine atony
     Dosage: SECOND DOSE
     Route: 065
  12. CARBOPROST [Concomitant]
     Active Substance: CARBOPROST
     Indication: Thrombosis
  13. TRANEXAMIC ACID [Concomitant]
     Active Substance: TRANEXAMIC ACID
     Indication: Postpartum haemorrhage
     Dosage: 1 G STAT
     Route: 042
  14. TRANEXAMIC ACID [Concomitant]
     Active Substance: TRANEXAMIC ACID
     Indication: Uterine atony

REACTIONS (6)
  - Dystonia [Recovered/Resolved]
  - Myoclonus [Recovered/Resolved]
  - Dyskinesia [Recovered/Resolved]
  - Tremor [Recovered/Resolved]
  - Movement disorder [Recovered/Resolved]
  - Muscle twitching [Recovered/Resolved]
